FAERS Safety Report 24021591 (Version 5)
Quarter: 2024Q3

REPORT INFORMATION
  Report Type: Spontaneous
  Country: CA (occurrence: CA)
  Receive Date: 20240627
  Receipt Date: 20240710
  Transmission Date: 20241017
  Serious: No
  Sender: ROCHE
  Company Number: CA-ROCHE-3547734

PATIENT
  Age: 76 Year
  Sex: Female

DRUGS (3)
  1. VABYSMO [Suspect]
     Active Substance: FARICIMAB\FARICIMAB-SVOA
     Indication: Neovascular age-related macular degeneration
     Dosage: EXTENDED TO EVERY 5 WEEKS?INJECTION DATES: 10/JUN/2022, 11/MAR/2023, 25/MAY/2023, 22/JUN/2023, 20/JU
     Route: 065
     Dates: start: 20240308
  2. LUCENTIS [Concomitant]
     Active Substance: RANIBIZUMAB
     Dates: start: 20180917, end: 20220525
  3. EYLEA [Concomitant]
     Active Substance: AFLIBERCEPT
     Dates: start: 20160429, end: 20180817

REACTIONS (2)
  - Vitreal cells [Unknown]
  - Vitreous floaters [Unknown]
